FAERS Safety Report 15825314 (Version 3)
Quarter: 2019Q1

REPORT INFORMATION
  Report Type: Spontaneous
  Country: GB (occurrence: GB)
  Receive Date: 20190115
  Receipt Date: 20190213
  Transmission Date: 20190417
  Serious: Yes (Other)
  Sender: FDA-Public Use
  Company Number: GB-ORION CORPORATION ORION PHARMA-19_00005168

PATIENT
  Sex: Female
  Weight: 64 kg

DRUGS (14)
  1. PARACETAMOL [Concomitant]
     Active Substance: ACETAMINOPHEN
     Dosage: STRENGTH: 500 MG
     Route: 065
  2. TRAMADOL HYDROCHLORIDE. [Concomitant]
     Active Substance: TRAMADOL HYDROCHLORIDE
     Indication: PAIN
     Dosage: ONE OR TWO WHEN REQUIRED UP TO 4-6 HOURLY; STRENGTH: 50 MG
     Route: 065
  3. AMANTADINE HYDROCHLORIDE. [Concomitant]
     Active Substance: AMANTADINE HYDROCHLORIDE
     Dosage: STRENGTH: 100 MG; AT 6 PM
     Route: 065
  4. CLENIL MODULITE [Concomitant]
     Active Substance: BECLOMETHASONE DIPROPIONATE
     Dosage: STRENGTH: 100 MICROGRAMS/ACTUATION
     Route: 065
  5. TAMOXIFEN [Concomitant]
     Active Substance: TAMOXIFEN
     Dosage: STRENGTH: 20 MG
     Route: 065
  6. CO-BENELDOPA [Concomitant]
     Active Substance: BENSERAZIDE HYDROCHLORIDE\LEVODOPA
     Dosage: 1 TAB AT NIGHT INCREASING TO TWO TABLETS IF REQUIRED; STRENGTH: 12.5/50
     Route: 065
  7. ROPINIROLE HYDROCHLORIDE. [Concomitant]
     Active Substance: ROPINIROLE HYDROCHLORIDE
     Dosage: STRENGTH: 4 MG; AFTER FOOD
     Route: 065
  8. ROPINIROLE HYDROCHLORIDE. [Concomitant]
     Active Substance: ROPINIROLE HYDROCHLORIDE
     Dosage: STRENGTH: 8 MG
     Route: 065
  9. BISACODYL. [Concomitant]
     Active Substance: BISACODYL
     Dosage: STRENGTH: 5 MG; AT NIGHT
     Route: 065
  10. SELEGILINE HYDROCHLORIDE. [Concomitant]
     Active Substance: SELEGILINE HYDROCHLORIDE
     Dosage: 1 TABLET BD MORNING AND LUNCHTIME; STRENGTH: 5 MG
     Route: 065
  11. STALEVO [Suspect]
     Active Substance: CARBIDOPA\ENTACAPONE\LEVODOPA
     Indication: PARKINSON^S DISEASE
     Dosage: 125/31.25/200 MG, ONE TO BE TAKEN FIVE TIMES PER DAY
     Route: 065
  12. STALEVO [Suspect]
     Active Substance: CARBIDOPA\ENTACAPONE\LEVODOPA
     Dosage: 150/37.5/200 MG, ONE TO BE TAKEN AT NIGHT
     Route: 065
  13. SALBUTAMOL [Concomitant]
     Active Substance: ALBUTEROL
     Dosage: AS DIRECTED; STRENGTH: 100 MICROGRAMS/PUFF
     Route: 065
  14. CAPSAICIN. [Concomitant]
     Active Substance: CAPSAICIN
     Dosage: STRENGTH: 0.025%
     Route: 065

REACTIONS (7)
  - Parkinson^s disease [Unknown]
  - Accidental overdose [Unknown]
  - Product complaint [Unknown]
  - Product commingling [Unknown]
  - Product dosage form issue [Unknown]
  - Manufacturing production issue [Unknown]
  - Product appearance confusion [Unknown]

NARRATIVE: CASE EVENT DATE: 2018
